FAERS Safety Report 19892990 (Version 1)
Quarter: 2021Q3

REPORT INFORMATION
  Report Type: Spontaneous
  Country: US (occurrence: US)
  Receive Date: 20210929
  Receipt Date: 20210929
  Transmission Date: 20211014
  Serious: No
  Sender: FDA-Public Use
  Company Number: US-TEVA-2021-US-1957716

PATIENT
  Age: 76 Year
  Sex: Female

DRUGS (3)
  1. AVAPRO [Concomitant]
     Active Substance: IRBESARTAN
     Indication: HYPERTENSION
  2. BACLOFEN. [Suspect]
     Active Substance: BACLOFEN
     Indication: MUSCLE SPASMS
     Dosage: SHE ONLY TOOK 20 MG A DAY
     Route: 065
     Dates: start: 2021, end: 2021
  3. CLONIDINE. [Concomitant]
     Active Substance: CLONIDINE
     Indication: HYPERTENSION

REACTIONS (9)
  - Asthenia [Recovered/Resolved with Sequelae]
  - Pruritus [Not Recovered/Not Resolved]
  - Withdrawal syndrome [Unknown]
  - Mental disorder [Recovered/Resolved]
  - Inflammation [Not Recovered/Not Resolved]
  - Skin burning sensation [Not Recovered/Not Resolved]
  - Confusional state [Recovered/Resolved]
  - Treatment noncompliance [Unknown]
  - Movement disorder [Unknown]

NARRATIVE: CASE EVENT DATE: 2021
